FAERS Safety Report 5206198-X (Version None)
Quarter: 2006Q4

REPORT INFORMATION
  Report Type: 
  Country: None (occurrence: None)
  Receive Date: 20061026
  Receipt Date: 20060927
  Transmission Date: 20070319
  Serious: No
  Sender: FDA-Public Use
  Company Number: 2006117232

PATIENT
  Age: 58 Year
  Sex: Female

DRUGS (1)
  1. LYRICA [Suspect]
     Dosage: 600 MG (300 MG, 2 IN 1 D)

REACTIONS (2)
  - HOT FLUSH [None]
  - PAIN [None]
